FAERS Safety Report 10730602 (Version 2)
Quarter: 2015Q2

REPORT INFORMATION
  Report Type: Spontaneous
  Country: NL (occurrence: NL)
  Receive Date: 20150122
  Receipt Date: 20150504
  Transmission Date: 20150821
  Serious: Yes (Other)
  Sender: FDA-Public Use
  Company Number: CHPA2015NL000982

PATIENT
  Age: 34 Year
  Sex: Male

DRUGS (1)
  1. OTRIVIN [Suspect]
     Active Substance: XYLOMETAZOLINE
     Indication: NASOPHARYNGITIS
     Dosage: SOMETIMES UP TO 5-8 ATOMIZATIONS, QD
     Route: 045
     Dates: start: 2005, end: 2015

REACTIONS (3)
  - Drug dependence [Recovered/Resolved]
  - Incorrect drug administration duration [Unknown]
  - Incorrect dose administered [Unknown]
